FAERS Safety Report 8012131-8 (Version None)
Quarter: 2011Q4

REPORT INFORMATION
  Report Type: 
  Country: None (occurrence: None)
  Receive Date: 20111228
  Receipt Date: 20111219
  Transmission Date: 20120403
  Serious: Yes (Hospitalization)
  Sender: FDA-Public Use
  Company Number: BG-ASTRAZENECA-2011SE75990

PATIENT
  Age: 27797 Day
  Sex: Female

DRUGS (12)
  1. BRILIQUE [Suspect]
     Indication: ACUTE MYOCARDIAL INFARCTION
     Route: 048
     Dates: start: 20111210
  2. KVAMATEL [Concomitant]
     Route: 048
  3. HEPARIN [Concomitant]
     Indication: ACUTE MYOCARDIAL INFARCTION
     Dosage: 1000 E/H
     Dates: start: 20111205, end: 20111206
  4. BRILIQUE [Suspect]
     Indication: ANGINA UNSTABLE
     Route: 048
     Dates: start: 20111210
  5. CRESTOR [Concomitant]
     Indication: ACUTE MYOCARDIAL INFARCTION
     Route: 048
     Dates: start: 20111205
  6. PRESTARIUM [Concomitant]
     Route: 048
  7. PLAVIX [Concomitant]
     Indication: ACUTE MYOCARDIAL INFARCTION
     Dates: start: 20111205, end: 20111209
  8. BRILIQUE [Suspect]
     Indication: ACUTE CORONARY SYNDROME
     Route: 048
     Dates: start: 20111210
  9. METOPROLOL SUCCINATE [Concomitant]
     Indication: ACUTE MYOCARDIAL INFARCTION
     Route: 048
     Dates: start: 20111210
  10. ASPIRIN [Concomitant]
     Indication: ACUTE MYOCARDIAL INFARCTION
     Route: 048
     Dates: start: 20111205
  11. RAMIPRIL [Concomitant]
     Indication: ACUTE MYOCARDIAL INFARCTION
     Dates: start: 20111205
  12. ISODINIT RETARD [Concomitant]
     Route: 048

REACTIONS (1)
  - ISCHAEMIC STROKE [None]
